FAERS Safety Report 19705362 (Version 1)
Quarter: 2021Q3

REPORT INFORMATION
  Report Type: Spontaneous
  Country: CA (occurrence: CA)
  Receive Date: 20210816
  Receipt Date: 20210816
  Transmission Date: 20211014
  Serious: Yes (Hospitalization, Other)
  Sender: FDA-Public Use
  Company Number: CA-PFIZER INC-202100991594

PATIENT
  Age: 68 Year
  Sex: Female

DRUGS (11)
  1. DIAMICRON [Concomitant]
     Active Substance: GLICLAZIDE
     Dosage: UNK
  2. CLARITHROMYCIN. [Suspect]
     Active Substance: CLARITHROMYCIN
     Indication: URINARY TRACT INFECTION
     Dosage: UNK
  3. PREGABALIN. [Concomitant]
     Active Substance: PREGABALIN
     Dosage: UNK
  4. DASATINIB MONOHYDRATE [Suspect]
     Active Substance: DASATINIB
     Dosage: UNK
  5. METFORMIN [Concomitant]
     Active Substance: METFORMIN HYDROCHLORIDE
     Dosage: UNK
  6. SALBUTAMOL [Concomitant]
     Active Substance: ALBUTEROL
     Dosage: UNK
  7. SALMETEROL XINAFOATE [Concomitant]
     Active Substance: SALMETEROL XINAFOATE
     Dosage: UNK
  8. CIPROFLOXACIN. [Suspect]
     Active Substance: CIPROFLOXACIN
     Indication: CYSTITIS
     Dosage: UNK
  9. NILOTINIB HYDROCHLORIDE [Suspect]
     Active Substance: NILOTINIB
     Dosage: UNK
  10. JANUVIA [Concomitant]
     Active Substance: SITAGLIPTIN PHOSPHATE
     Dosage: UNK
  11. ROSUVASTATIN CALCIUM. [Concomitant]
     Active Substance: ROSUVASTATIN CALCIUM
     Dosage: UNK

REACTIONS (30)
  - Urinary tract infection [Unknown]
  - Constipation [Unknown]
  - Myocardial infarction [Unknown]
  - Palpitations [Unknown]
  - Pneumonia [Unknown]
  - Secretion discharge [Unknown]
  - Urethral pain [Unknown]
  - Vaginal infection [Unknown]
  - Calculus bladder [Unknown]
  - Erythema [Unknown]
  - Nasopharyngitis [Unknown]
  - Abdominal pain [Unknown]
  - Back pain [Unknown]
  - Dyspnoea [Unknown]
  - Urinary retention [Unknown]
  - Cellulitis [Unknown]
  - Pruritus [Unknown]
  - Vulvovaginal dryness [Unknown]
  - Blood potassium decreased [Unknown]
  - Extremity necrosis [Unknown]
  - Acne [Unknown]
  - Alopecia [Unknown]
  - Dehydration [Unknown]
  - Localised infection [Unknown]
  - Malaise [Unknown]
  - Photosensitivity reaction [Unknown]
  - Cough [Unknown]
  - Drug hypersensitivity [Unknown]
  - Peripheral swelling [Unknown]
  - Vulvovaginal burning sensation [Unknown]
